FAERS Safety Report 7834049-3 (Version None)
Quarter: 2011Q4

REPORT INFORMATION
  Report Type: 
  Country: None (occurrence: None)
  Receive Date: 20111024
  Receipt Date: 20111024
  Transmission Date: 20120403
  Serious: No
  Sender: FDA-Public Use
  Company Number: None

PATIENT
  Age: 66 Year
  Sex: Male

DRUGS (1)
  1. DALIRESP [Suspect]
     Dosage: 1 TABLET -500MG-
     Route: 048

REACTIONS (3)
  - PAIN [None]
  - NAUSEA [None]
  - INFLUENZA [None]
